FAERS Safety Report 18756026 (Version 1)
Quarter: 2021Q1

REPORT INFORMATION
  Report Type: Spontaneous
  Country: US (occurrence: US)
  Receive Date: 20210119
  Receipt Date: 20210119
  Transmission Date: 20210419
  Serious: Yes (Other)
  Sender: FDA-Public Use
  Company Number: US-PFIZER INC-2021020785

PATIENT

DRUGS (1)
  1. DROPERIDOL. [Suspect]
     Active Substance: DROPERIDOL
     Dosage: 10 MG AS THE THRESHOLD DOSE

REACTIONS (1)
  - Cardiotoxicity [Unknown]
